FAERS Safety Report 8663276 (Version 5)
Quarter: 2013Q3

REPORT INFORMATION
  Report Type: Spontaneous
  Country: JP (occurrence: JP)
  Receive Date: 20120713
  Receipt Date: 20130703
  Transmission Date: 20140515
  Serious: Yes (Other)
  Sender: FDA-Public Use
  Company Number: JP-009507513-1207JPN001482

PATIENT
  Age: 78 Year
  Sex: Male
  Weight: 70 kg

DRUGS (17)
  1. BRIDION [Suspect]
     Indication: NEUROMUSCULAR BLOCKADE REVERSAL
     Dosage: 140 MG, QD
     Route: 042
     Dates: start: 20120629, end: 20120629
  2. SUGAMMADEX SODIUM [Suspect]
     Indication: NEUROMUSCULAR BLOCKADE REVERSAL
     Dosage: 2-3MG/KG INJECTED SLOWLY 3-5 MINUTES BEFORE EXTUBATION
  3. SIGMART [Concomitant]
     Dosage: DOSAGE IS UNCERTAIN DURING A DAY.
     Route: 065
     Dates: start: 20120629, end: 20120629
  4. PROSTANDIN [Concomitant]
     Dosage: DOSAGE IS UNCERTAIN DURING A DAY.
     Route: 065
     Dates: start: 20120629, end: 20120629
  5. INOVAN (DOPAMINE HYDROCHLORIDE) [Concomitant]
     Dosage: DOSAGE IS UNCERTAIN DURING A DAY.
     Route: 065
     Dates: start: 20120629, end: 20120629
  6. PERDIPINE [Concomitant]
     Dosage: DOSAGE IS UNCERTAIN DURING A DAY.
     Route: 065
     Dates: start: 20120629, end: 20120629
  7. HEPARIN SODIUM [Concomitant]
     Dosage: DOSAGE IS UNCERTAIN DURING A DAY.
     Route: 065
     Dates: start: 20120629, end: 20120629
  8. ATELEC [Concomitant]
     Dosage: DOSAGE IS UNCERTAIN DURING A DAY.
     Route: 048
  9. LASIX (FUROSEMIDE) [Concomitant]
     Dosage: DOSAGE IS UNCERTAIN DURING A DAY.
     Route: 048
  10. OLMETEC [Concomitant]
     Dosage: DOSAGE IS UNCERTAIN DURING A DAY.
     Route: 048
  11. SELARA [Concomitant]
     Dosage: DOSAGE IS UNCERTAIN DURING A DAY.
     Route: 048
  12. TAKEPRON [Concomitant]
     Dosage: DOSAGE IS UNCERTAIN DURING A DAY.
     Route: 048
  13. LIPITOR [Concomitant]
     Dosage: DOSAGE IS UNCERTAIN DURING A DAY.
     Route: 048
  14. MAGLAX [Concomitant]
     Dosage: DOSAGE IS UNCERTAIN DURING A DAY.
     Route: 048
  15. ESLAX [Concomitant]
     Indication: NEUROMUSCULAR BLOCKING THERAPY
     Route: 042
  16. PROPOFOL [Concomitant]
     Dosage: UNK
  17. REMIFENTANIL HYDROCHLORIDE [Concomitant]

REACTIONS (5)
  - Cardiac arrest [Recovering/Resolving]
  - Erythema [Recovering/Resolving]
  - Urticaria [Recovering/Resolving]
  - Anaphylactoid reaction [Recovering/Resolving]
  - Blood pressure decreased [Recovering/Resolving]
